FAERS Safety Report 23342746 (Version 1)
Quarter: 2023Q4

REPORT INFORMATION
  Report Type: Report from Study
  Country: MX (occurrence: MX)
  Receive Date: 20231227
  Receipt Date: 20231227
  Transmission Date: 20240110
  Serious: Yes (Hospitalization, Other)
  Sender: FDA-Public Use
  Company Number: MX-AstraZeneca-2023A251465

PATIENT
  Age: 7 Month
  Sex: Male
  Weight: 3.7 kg

DRUGS (3)
  1. SYNAGIS [Suspect]
     Active Substance: PALIVIZUMAB
     Indication: Antiviral prophylaxis
     Route: 030
     Dates: end: 20231211
  2. SYNAGIS [Suspect]
     Active Substance: PALIVIZUMAB
     Dosage: 0.5 ML, MONTHLY
     Route: 030
     Dates: end: 20231002
  3. SYNAGIS [Suspect]
     Active Substance: PALIVIZUMAB
     Dosage: MONTHLY
     Route: 030

REACTIONS (7)
  - Atelectasis [Recovered/Resolved]
  - Bronchiolitis [Recovered/Resolved]
  - Lung disorder [Recovered/Resolved]
  - Cystic fibrosis [Unknown]
  - Respiratory distress [Recovered/Resolved]
  - Inappropriate schedule of product administration [Recovered/Resolved]
  - Pneumonitis [Recovered/Resolved]

NARRATIVE: CASE EVENT DATE: 20230901
